FAERS Safety Report 13037939 (Version 2)
Quarter: 2017Q1

REPORT INFORMATION
  Report Type: Spontaneous
  Country: US (occurrence: US)
  Receive Date: 20161218
  Receipt Date: 20170314
  Transmission Date: 20170428
  Serious: Yes (Death, Hospitalization, Other)
  Sender: FDA-Public Use
  Company Number: US-BRISTOL-MYERS SQUIBB COMPANY-BMS-2016-105940

PATIENT
  Age: 70 Year
  Sex: Male

DRUGS (1)
  1. NIVOLUMAB [Suspect]
     Active Substance: NIVOLUMAB
     Indication: LUNG ADENOCARCINOMA METASTATIC
     Dosage: 3 MG/KG, Q2WK
     Route: 065

REACTIONS (2)
  - Transfusion [Unknown]
  - Autoimmune haemolytic anaemia [Fatal]
